FAERS Safety Report 7238746-2 (Version None)
Quarter: 2011Q1

REPORT INFORMATION
  Report Type: 
  Country: None (occurrence: None)
  Receive Date: 20110121
  Receipt Date: 20110118
  Transmission Date: 20110831
  Serious: Yes (Death)
  Sender: FDA-Public Use
  Company Number: DE-JNJFOC-20110104757

PATIENT
  Age: 78 Year
  Sex: Female

DRUGS (5)
  1. COMTESS [Concomitant]
     Route: 065
  2. RISPERDAL [Suspect]
     Indication: PARKINSON'S DISEASE
     Route: 048
  3. SIFROL [Concomitant]
     Route: 065
  4. MADOPAR [Concomitant]
     Route: 065
  5. RISPERDAL [Suspect]
     Indication: HALLUCINATION, VISUAL
     Route: 048

REACTIONS (3)
  - CIRCULATORY COLLAPSE [None]
  - OFF LABEL USE [None]
  - DRUG INTOLERANCE [None]
